FAERS Safety Report 19495971 (Version 1)
Quarter: 2021Q3

REPORT INFORMATION
  Report Type: Other
  Country: PL (occurrence: PL)
  Receive Date: 20210706
  Receipt Date: 20210706
  Transmission Date: 20211014
  Serious: Yes (Death, Hospitalization, Other)
  Sender: FDA-Public Use
  Company Number: PL-ROCHE-2858540

PATIENT
  Age: 43 Year
  Sex: Male

DRUGS (10)
  1. LAMIVUDINE. [Concomitant]
     Active Substance: LAMIVUDINE
     Indication: HIV INFECTION
     Dates: start: 2018
  2. ABACAVIR. [Concomitant]
     Active Substance: ABACAVIR
     Indication: HIV INFECTION
     Dates: start: 2018
  3. RITONAVIR. [Suspect]
     Active Substance: RITONAVIR
     Indication: HIV INFECTION
     Route: 065
     Dates: end: 2016
  4. RITONAVIR. [Suspect]
     Active Substance: RITONAVIR
     Route: 065
     Dates: start: 201803
  5. DARUNAVIR [Concomitant]
     Active Substance: DARUNAVIR
     Indication: HIV INFECTION
     Dates: start: 201803
  6. TENOFOVIR [Suspect]
     Active Substance: TENOFOVIR
     Indication: HIV INFECTION
     Route: 065
     Dates: end: 2016
  7. TENOFOVIR [Suspect]
     Active Substance: TENOFOVIR
     Route: 065
     Dates: start: 201803
  8. LAMIVUDINE. [Suspect]
     Active Substance: LAMIVUDINE
     Indication: HIV INFECTION
     Route: 065
     Dates: end: 2016
  9. SAQUINAVIR [Suspect]
     Active Substance: SAQUINAVIR
     Indication: HIV INFECTION
     Route: 065
     Dates: end: 2016
  10. EMTRICITABINE [Concomitant]
     Active Substance: EMTRICITABINE
     Indication: HIV INFECTION
     Dates: start: 201803

REACTIONS (16)
  - Bulbar palsy [Unknown]
  - Aphasia [Unknown]
  - Hemiparesis [Unknown]
  - Cerebral ischaemia [Unknown]
  - Dysphagia [Unknown]
  - Extensor plantar response [Unknown]
  - Cytomegalovirus infection [Fatal]
  - Intentional product misuse [Fatal]
  - Pneumonia bacterial [Fatal]
  - Cerebral haemorrhage [Unknown]
  - Facial paralysis [Unknown]
  - Gait inability [Unknown]
  - Cerebral toxoplasmosis [Unknown]
  - Quadriparesis [Unknown]
  - Monoparesis [Unknown]
  - CD4 lymphocytes decreased [Unknown]
